FAERS Safety Report 8020306-7 (Version None)
Quarter: 2011Q4

REPORT INFORMATION
  Report Type: 
  Country: None (occurrence: None)
  Receive Date: 20111228
  Receipt Date: 20111221
  Transmission Date: 20120403
  Serious: Yes (Life-Threatening)
  Sender: FDA-Public Use
  Company Number: AUR-APL-2011-06233

PATIENT
  Age: 64 Year
  Sex: Male

DRUGS (3)
  1. CITALOPRAM HYDROBROMIDE [Suspect]
     Indication: DEPRESSION
     Dosage: ORAL
     Route: 048
     Dates: start: 20111201, end: 20111211
  2. CARBAMAZEPINE [Concomitant]
  3. GABAPENTIN [Concomitant]

REACTIONS (1)
  - STATUS EPILEPTICUS [None]
